FAERS Safety Report 6699156-X (Version None)
Quarter: 2010Q2

REPORT INFORMATION
  Report Type: 
  Country: None (occurrence: None)
  Receive Date: 20100427
  Receipt Date: 20100419
  Transmission Date: 20101027
  Serious: Yes (Death)
  Sender: FDA-Public Use
  Company Number: US-PURDUE-USA-2010-0043395

PATIENT
  Age: 86 Year
  Sex: Female

DRUGS (1)
  1. OXYCONTIN [Suspect]
     Indication: DRUG USE FOR UNKNOWN INDICATION
     Dosage: 18 TABLET, SINGLE

REACTIONS (3)
  - GUN SHOT WOUND [None]
  - INTENTIONAL OVERDOSE [None]
  - VICTIM OF HOMICIDE [None]
